FAERS Safety Report 8662407 (Version 2)
Quarter: 2012Q4

REPORT INFORMATION
  Report Type: 
  Country: DE (occurrence: DE)
  Receive Date: 20120712
  Receipt Date: 20120828
  Transmission Date: 20130627
  Serious: Yes (Other)
  Sender: FDA-Public Use
  Company Number: DE-B.I. PHARMACEUTICALS,INC./RIDGEFIELD-2012-DE-00731DE

PATIENT
  Sex: Female

DRUGS (5)
  1. PRADAXA [Suspect]
     Indication: ATRIAL FIBRILLATION
     Dosage: 2 anz
     Route: 048
     Dates: start: 201110
  2. CIPRALEX [Concomitant]
     Dosage: 1 anz
  3. PRESOMEN [Concomitant]
     Dosage: 1 anz
  4. ATACAND [Concomitant]
     Dosage: 1 anz
  5. BELOC ZOK MITE [Concomitant]
     Dosage: 2 anz

REACTIONS (2)
  - Haemorrhoidal haemorrhage [Recovered/Resolved]
  - Anal prolapse [Recovered/Resolved]
